FAERS Safety Report 17589666 (Version 2)
Quarter: 2021Q2

REPORT INFORMATION
  Report Type: Spontaneous
  Country: US (occurrence: US)
  Receive Date: 20200327
  Receipt Date: 20210413
  Transmission Date: 20210716
  Serious: No
  Sender: FDA-Public Use
  Company Number: US-ALLERGAN-1945242US

PATIENT
  Sex: Female

DRUGS (3)
  1. LATISSE [Suspect]
     Active Substance: BIMATOPROST
     Indication: GROWTH OF EYELASHES
     Dosage: 1 GTT, QHS
     Route: 061
  2. MSM SILVER EYE LUBRICANT [Concomitant]
     Indication: DRY EYE
     Route: 047
  3. MSM SILVER EYE LUBRICANT [Concomitant]
     Indication: CATARACT

REACTIONS (5)
  - Cataract [Not Recovered/Not Resolved]
  - Wrong technique in product usage process [Unknown]
  - Accidental exposure to product [Unknown]
  - Eye irritation [Unknown]
  - Expired product administered [Unknown]

NARRATIVE: CASE EVENT DATE: 201910
